FAERS Safety Report 23264464 (Version 1)
Quarter: 2023Q4

REPORT INFORMATION
  Report Type: Report from Study
  Country: DO (occurrence: DO)
  Receive Date: 20231205
  Receipt Date: 20231205
  Transmission Date: 20240110
  Serious: Yes (Hospitalization)
  Sender: FDA-Public Use
  Company Number: DO-JNJFOC-20231173387

PATIENT
  Age: 86 Year
  Sex: Female

DRUGS (1)
  1. IMBRUVICA [Suspect]
     Active Substance: IBRUTINIB
     Indication: Chronic lymphocytic leukaemia
     Route: 048
     Dates: start: 20230501

REACTIONS (2)
  - Tachycardia [Unknown]
  - Product administration error [Unknown]

NARRATIVE: CASE EVENT DATE: 20230901
